FAERS Safety Report 6131611-3 (Version None)
Quarter: 2009Q1

REPORT INFORMATION
  Report Type: 
  Country: None (occurrence: None)
  Receive Date: 20090325
  Receipt Date: 20081216
  Transmission Date: 20090719
  Serious: Yes (Life-Threatening)
  Sender: FDA-Public Use
  Company Number: US-BRISTOL-MYERS SQUIBB COMPANY-14416655

PATIENT
  Age: 80 Year
  Sex: Male

DRUGS (2)
  1. ERBITUX [Suspect]
     Indication: NON-SMALL CELL LUNG CANCER
     Dosage: 828 MG
     Route: 042
     Dates: start: 20081008, end: 20081008
  2. RADIATION THERAPY [Concomitant]
     Indication: NON-SMALL CELL LUNG CANCER

REACTIONS (1)
  - RESPIRATORY ARREST [None]
